FAERS Safety Report 10337346 (Version 2)
Quarter: 2014Q3

REPORT INFORMATION
  Report Type: Report from Study
  Country: US (occurrence: US)
  Receive Date: 20140723
  Receipt Date: 20140723
  Transmission Date: 20150326
  Serious: Yes (Other)
  Sender: FDA-Public Use
  Company Number: US-MYLANLABS-2014S1017218

PATIENT
  Age: 24 Year
  Sex: Female

DRUGS (2)
  1. AMNESTEEM [Suspect]
     Active Substance: ISOTRETINOIN
     Dates: start: 20110812, end: 20111213
  2. AMNESTEEM [Suspect]
     Active Substance: ISOTRETINOIN
     Route: 048
     Dates: start: 20110812, end: 20111213

REACTIONS (4)
  - Skin exfoliation [Unknown]
  - Lip dry [Unknown]
  - Abortion spontaneous [Unknown]
  - Maternal exposure before pregnancy [Unknown]
